FAERS Safety Report 16751479 (Version 2)
Quarter: 2019Q3

REPORT INFORMATION
  Report Type: Spontaneous
  Country: KR (occurrence: KR)
  Receive Date: 20190828
  Receipt Date: 20190917
  Transmission Date: 20191005
  Serious: Yes (Death, Life-Threatening, Other)
  Sender: FDA-Public Use
  Company Number: KR-JNJFOC-20190824494

PATIENT

DRUGS (1)
  1. SYLVANT [Suspect]
     Active Substance: SILTUXIMAB
     Indication: CASTLEMAN^S DISEASE
     Route: 042

REACTIONS (4)
  - Death [Fatal]
  - Anaphylactic shock [Unknown]
  - Infusion related reaction [Unknown]
  - Drug ineffective [Unknown]
